FAERS Safety Report 15275719 (Version 1)
Quarter: 2018Q3

REPORT INFORMATION
  Report Type: Spontaneous
  Country: US (occurrence: US)
  Receive Date: 20180728
  Receipt Date: 20180728
  Transmission Date: 20181010
  Serious: Yes (Death, Hospitalization, Other)
  Sender: FDA-Public Use
  Company Number: None

PATIENT
  Age: 70 Year
  Sex: Female
  Weight: 51.75 kg

DRUGS (1)
  1. KEYTRUDA [Suspect]
     Active Substance: PEMBROLIZUMAB
     Indication: DRUG THERAPY
     Dates: start: 20180521

REACTIONS (4)
  - Pain [None]
  - Dyspnoea [None]
  - Appendicitis [None]
  - General physical health deterioration [None]

NARRATIVE: CASE EVENT DATE: 20180606
